FAERS Safety Report 14735121 (Version 5)
Quarter: 2023Q1

REPORT INFORMATION
  Report Type: Spontaneous
  Country: PL (occurrence: PL)
  Receive Date: 20180409
  Receipt Date: 20230327
  Transmission Date: 20230417
  Serious: Yes (Death, Hospitalization, Other)
  Sender: FDA-Public Use
  Company Number: PHHY2018PL057380

PATIENT
  Age: 56 Year
  Sex: Female

DRUGS (20)
  1. DOXORUBICIN HYDROCHLORIDE [Suspect]
     Active Substance: DOXORUBICIN HYDROCHLORIDE
     Indication: Plasma cell myeloma
     Dosage: UNK (VD-PACE)
     Route: 065
  2. DOXORUBICIN HYDROCHLORIDE [Suspect]
     Active Substance: DOXORUBICIN HYDROCHLORIDE
     Indication: Chemotherapy
  3. ETOPOSIDE [Suspect]
     Active Substance: ETOPOSIDE
     Indication: Plasma cell myeloma
     Dosage: UNK (VD-PACE)
     Route: 065
  4. ETOPOSIDE [Suspect]
     Active Substance: ETOPOSIDE
     Indication: Chemotherapy
  5. FLUCONAZOLE [Suspect]
     Active Substance: FLUCONAZOLE
     Indication: Chemotherapy
     Dosage: UNK
     Route: 065
  6. DEXAMETHASONE [Suspect]
     Active Substance: DEXAMETHASONE
     Indication: Plasma cell myeloma
     Dosage: UNK (VD-PACE)
     Route: 065
  7. DEXAMETHASONE [Suspect]
     Active Substance: DEXAMETHASONE
     Indication: Chemotherapy
     Dosage: UNK (CTD REGIMEN)
     Route: 065
  8. CISPLATIN [Suspect]
     Active Substance: CISPLATIN
     Indication: Plasma cell myeloma
     Dosage: UNK (VD-PACE)
     Route: 065
  9. CISPLATIN [Suspect]
     Active Substance: CISPLATIN
     Indication: Chemotherapy
  10. BENDAMUSTINE [Suspect]
     Active Substance: BENDAMUSTINE
     Indication: Plasma cell myeloma
     Dosage: UNK
     Route: 065
  11. CYCLOPHOSPHAMIDE [Suspect]
     Active Substance: CYCLOPHOSPHAMIDE
     Indication: Plasma cell myeloma
     Dosage: UNK (VD-PACE)
     Route: 065
  12. CYCLOPHOSPHAMIDE [Suspect]
     Active Substance: CYCLOPHOSPHAMIDE
     Indication: Chemotherapy
     Dosage: UNK (CTD REGIMEN)
     Route: 065
  13. BORTEZOMIB [Suspect]
     Active Substance: BORTEZOMIB
     Indication: Plasma cell myeloma
     Dosage: UNK (VD-PACE)
     Route: 065
  14. BORTEZOMIB [Suspect]
     Active Substance: BORTEZOMIB
     Indication: Chemotherapy
     Dosage: UNK (CTD REGIMEN)
     Route: 065
  15. MELPHALAN [Suspect]
     Active Substance: MELPHALAN
     Indication: Bone marrow conditioning regimen
     Dosage: 120 MG, UNKNOWN
     Route: 065
     Dates: start: 201703
  16. MELPHALAN [Suspect]
     Active Substance: MELPHALAN
     Indication: Plasma cell myeloma
  17. LENALIDOMIDE [Suspect]
     Active Substance: LENALIDOMIDE
     Indication: Plasma cell myeloma
     Dosage: UNK
     Route: 065
  18. THALIDOMIDE [Suspect]
     Active Substance: THALIDOMIDE
     Indication: Chemotherapy
     Dosage: UNK (CTD REGIMEN)
     Route: 065
  19. MICAFUNGIN [Suspect]
     Active Substance: MICAFUNGIN
     Indication: Product used for unknown indication
     Dosage: 100 MG, UNK
     Route: 065
  20. MICAFUNGIN [Suspect]
     Active Substance: MICAFUNGIN
     Dosage: 200 MG, UNK
     Route: 065

REACTIONS (20)
  - Sinusitis [Fatal]
  - Plasma cell myeloma [Fatal]
  - Plasma cell leukaemia [Fatal]
  - Malignant neoplasm progression [Fatal]
  - Pancytopenia [Fatal]
  - Enterococcal sepsis [Fatal]
  - Gastrointestinal fungal infection [Fatal]
  - Abscess [Fatal]
  - Sinus polyp [Fatal]
  - Oral disorder [Fatal]
  - Oral fungal infection [Fatal]
  - Mucosal erosion [Fatal]
  - Herpes zoster [Fatal]
  - Candida infection [Fatal]
  - Varicella zoster virus infection [Fatal]
  - Pneumonia fungal [Fatal]
  - Mucosal inflammation [Fatal]
  - Pain [Fatal]
  - Fungal infection [Recovering/Resolving]
  - Enterococcal infection [Unknown]

NARRATIVE: CASE EVENT DATE: 20170101
